FAERS Safety Report 8480030-3 (Version None)
Quarter: 2012Q2

REPORT INFORMATION
  Report Type: 
  Country: None (occurrence: None)
  Receive Date: 20120615
  Receipt Date: 20120608
  Transmission Date: 20120825
  Serious: No
  Sender: FDA-Public Use
  Company Number: 2012SP031895

PATIENT
  Age: 28 Year
  Sex: Male

DRUGS (3)
  1. SAPHRIS [Suspect]
     Indication: PRODUCT USED FOR UNKNOWN INDICATION
     Dosage: 5 MG;QD;PO
     Route: 048
     Dates: start: 20120501
  2. LAMICTAL [Concomitant]
  3. LEXAPRO [Concomitant]

REACTIONS (2)
  - RASH [None]
  - OEDEMA PERIPHERAL [None]
